FAERS Safety Report 9377795 (Version 1)
Quarter: 2013Q3

REPORT INFORMATION
  Report Type: Spontaneous
  Country: BR (occurrence: BR)
  Receive Date: 20130701
  Receipt Date: 20130701
  Transmission Date: 20140515
  Serious: Yes (Other)
  Sender: FDA-Public Use
  Company Number: PHHY2013BR066574

PATIENT
  Age: 49 Year
  Sex: Male
  Weight: 110 kg

DRUGS (5)
  1. DICLOFENAC [Suspect]
     Indication: OSTEOARTHRITIS
     Dates: start: 2003, end: 201306
  2. DICLOFENAC [Suspect]
     Indication: OFF LABEL USE
  3. HYDROCHLOROTHIAZIDE [Suspect]
     Indication: HYPERTENSION
     Dates: start: 2003
  4. CAPTOPRIL [Suspect]
     Dates: start: 2013
  5. VIMOVO [Suspect]
     Indication: OSTEOARTHRITIS
     Dosage: 500MG+20MG
     Dates: start: 20130619, end: 20130622

REACTIONS (3)
  - Swelling [Unknown]
  - Osteoarthritis [Unknown]
  - Muscular weakness [Recovered/Resolved]
